FAERS Safety Report 20220878 (Version 1)
Quarter: 2021Q4

REPORT INFORMATION
  Report Type: Spontaneous
  Country: TW (occurrence: TW)
  Receive Date: 20211223
  Receipt Date: 20211223
  Transmission Date: 20220303
  Serious: Yes (Other)
  Sender: FDA-Public Use
  Company Number: TW-SUN PHARMACEUTICAL INDUSTRIES LTD-2021R1-321435

PATIENT
  Sex: Female
  Weight: 1.508 kg

DRUGS (6)
  1. METHOCARBAMOL [Suspect]
     Active Substance: METHOCARBAMOL
     Indication: Back pain
     Dosage: UNK
     Route: 064
  2. MORPHINE [Suspect]
     Active Substance: MORPHINE
     Indication: Back pain
     Dosage: UNK
     Route: 064
  3. CELECOXIB [Suspect]
     Active Substance: CELECOXIB
     Indication: Back pain
     Dosage: UNK
     Route: 064
  4. CEFAZOLIN [Suspect]
     Active Substance: CEFAZOLIN
     Indication: Back pain
     Dosage: UNK
     Route: 064
  5. CLINDAMYCIN [Suspect]
     Active Substance: CLINDAMYCIN
     Indication: Back pain
     Dosage: UNK
     Route: 064
  6. TRAMADOL [Suspect]
     Active Substance: TRAMADOL
     Indication: Back pain
     Dosage: UNK
     Route: 064

REACTIONS (4)
  - Neonatal respiratory distress syndrome [Recovering/Resolving]
  - Foetal exposure during pregnancy [Unknown]
  - Low birth weight baby [Unknown]
  - Premature baby [Unknown]
